FAERS Safety Report 6368017-8 (Version None)
Quarter: 2009Q3

REPORT INFORMATION
  Report Type: 
  Country: None (occurrence: None)
  Receive Date: 20090922
  Receipt Date: 20090911
  Transmission Date: 20100115
  Serious: Yes (Other)
  Sender: FDA-Public Use
  Company Number: CA-JNJFOC-20090905075

PATIENT
  Age: 37 Year
  Sex: Male

DRUGS (3)
  1. PARACETAMOL / CAFFEINE / CODEINE PHOSPHATE [Suspect]
     Indication: BACK PAIN
     Route: 065
  2. PARACETAMOL / CAFFEINE / CODEINE PHOSPHATE [Suspect]
     Route: 065
  3. ACETAMINOPHEN/CHLORZOXAZONE [Suspect]
     Indication: BACK PAIN
     Route: 065

REACTIONS (4)
  - DEAFNESS UNILATERAL [None]
  - DRUG TOXICITY [None]
  - OVERDOSE [None]
  - PNEUMONIA [None]
